FAERS Safety Report 11249234 (Version 1)
Quarter: 2015Q3

REPORT INFORMATION
  Report Type: Spontaneous
  Country: US (occurrence: US)
  Receive Date: 20150708
  Receipt Date: 20150708
  Transmission Date: 20151125
  Serious: Yes (Hospitalization)
  Sender: FDA-Public Use
  Company Number: US-ELI_LILLY_AND_COMPANY-US200905005088

PATIENT
  Age: 40 Year
  Sex: Male
  Weight: 78.46 kg

DRUGS (6)
  1. ALIMTA [Suspect]
     Active Substance: PEMETREXED DISODIUM
     Indication: SQUAMOUS CELL CARCINOMA OF HEAD AND NECK
     Dosage: 500 MG/M2, UNK
     Dates: start: 20090424, end: 20090526
  2. ALIMTA [Suspect]
     Active Substance: PEMETREXED DISODIUM
     Dosage: 485 MG, UNK
     Dates: start: 20090514, end: 20090514
  3. CORTICOSTEROIDS [Concomitant]
     Active Substance: CORTICOSTEROID NOS
  4. VITAMIN B12 [Concomitant]
     Active Substance: CYANOCOBALAMIN
     Indication: VITAMIN SUPPLEMENTATION
  5. FOLIC ACID. [Concomitant]
     Active Substance: FOLIC ACID
     Indication: VITAMIN SUPPLEMENTATION
  6. AVASTIN [Concomitant]
     Active Substance: BEVACIZUMAB
     Indication: SMALL CELL CARCINOMA
     Dosage: 15 MG/KG, UNK
     Dates: start: 20090424, end: 20090526

REACTIONS (1)
  - Nausea [Recovered/Resolved]

NARRATIVE: CASE EVENT DATE: 20090522
